FAERS Safety Report 5271682-X (Version None)
Quarter: 2007Q1

REPORT INFORMATION
  Report Type: 
  Country: None (occurrence: None)
  Receive Date: 20070321
  Receipt Date: 20070312
  Transmission Date: 20070707
  Serious: Yes (Death, Hospitalization)
  Sender: FDA-Public Use
  Company Number: US-PFIZER INC-2007018745

PATIENT
  Sex: Male
  Weight: 86.2 kg

DRUGS (1)
  1. BEXTRA [Suspect]
     Indication: ARTHRITIS
     Dates: start: 20040501, end: 20041001

REACTIONS (1)
  - STEVENS-JOHNSON SYNDROME [None]
